FAERS Safety Report 10062378 (Version 2)
Quarter: 2014Q2

REPORT INFORMATION
  Report Type: Spontaneous
  Country: US (occurrence: US)
  Receive Date: 20140407
  Receipt Date: 20140408
  Transmission Date: 20141212
  Serious: No
  Sender: FDA-Public Use
  Company Number: US-PFIZER INC-2014093944

PATIENT
  Age: 77 Year
  Sex: Female

DRUGS (1)
  1. INLYTA [Suspect]
     Indication: LIP NEOPLASM MALIGNANT STAGE UNSPECIFIED
     Dosage: 5 MG, 2X/DAY
     Route: 048
     Dates: start: 20140227

REACTIONS (4)
  - Decreased appetite [Unknown]
  - Off label use [Unknown]
  - Diarrhoea [Unknown]
  - Decreased appetite [Unknown]
